FAERS Safety Report 6840288-0 (Version None)
Quarter: 2010Q3

REPORT INFORMATION
  Report Type: 
  Country: None (occurrence: None)
  Receive Date: 20100709
  Receipt Date: 20100624
  Transmission Date: 20110219
  Serious: Yes (Disabling)
  Sender: FDA-Public Use
  Company Number: 1-22572182

PATIENT
  Sex: Female
  Weight: 61.2356 kg

DRUGS (1)
  1. AMPHETAMINES [Suspect]
     Indication: ATTENTION DEFICIT/HYPERACTIVITY DISORDER
     Dosage: 60-90 MG, DAILY, ORAL
     Route: 048
     Dates: start: 20030301

REACTIONS (24)
  - DISTURBANCE IN ATTENTION [None]
  - DRUG EFFECT DECREASED [None]
  - DRUG HYPERSENSITIVITY [None]
  - DRUG TOLERANCE [None]
  - DYSGEUSIA [None]
  - FOOD INTERACTION [None]
  - HALLUCINATION, AUDITORY [None]
  - HOMELESS [None]
  - IMPAIRED WORK ABILITY [None]
  - INCORRECT DOSE ADMINISTERED [None]
  - INSOMNIA [None]
  - MALAISE [None]
  - NASAL DISCOMFORT [None]
  - NAUSEA [None]
  - NEURALGIA [None]
  - PAROSMIA [None]
  - PHARYNGEAL OEDEMA [None]
  - PRODUCT FORMULATION ISSUE [None]
  - PRODUCT QUALITY ISSUE [None]
  - SOMNOLENCE [None]
  - THROAT IRRITATION [None]
  - TINNITUS [None]
  - TREMOR [None]
  - WRONG TECHNIQUE IN DRUG USAGE PROCESS [None]
